FAERS Safety Report 24992892 (Version 1)
Quarter: 2025Q1

REPORT INFORMATION
  Report Type: Spontaneous
  Country: US (occurrence: US)
  Receive Date: 20250221
  Receipt Date: 20250221
  Transmission Date: 20250409
  Serious: No
  Sender: AMGEN
  Company Number: US-AMGEN-USASP2025029120

PATIENT
  Sex: Female

DRUGS (2)
  1. TEPEZZA [Suspect]
     Active Substance: TEPROTUMUMAB-TRBW
     Indication: Product used for unknown indication
     Route: 065
  2. XIIDRA [Concomitant]
     Active Substance: LIFITEGRAST
     Route: 065

REACTIONS (2)
  - Conjunctival oedema [Unknown]
  - Conjunctivochalasis [Unknown]
